FAERS Safety Report 4414874-1 (Version None)
Quarter: 2004Q3

REPORT INFORMATION
  Report Type: 
  Country: None (occurrence: None)
  Receive Date: 20040804
  Receipt Date: 20040123
  Transmission Date: 20050211
  Serious: No
  Sender: FDA-Public Use
  Company Number: US-BRISTOL-MYERS SQUIBB COMPANY-12485710

PATIENT
  Age: 61 Year
  Sex: Male
  Weight: 83 kg

DRUGS (2)
  1. GLUCOVANCE [Suspect]
     Indication: DIABETES MELLITUS NON-INSULIN-DEPENDENT
     Dosage: DOSAGE FORM = TABLET (2.5/500MG PER TABLET)
     Route: 048
     Dates: start: 20040113
  2. ACIPHEX [Concomitant]

REACTIONS (1)
  - VISION BLURRED [None]
